FAERS Safety Report 22519420 (Version 8)
Quarter: 2025Q1

REPORT INFORMATION
  Report Type: Report from Study
  Country: US (occurrence: US)
  Receive Date: 20230605
  Receipt Date: 20250217
  Transmission Date: 20250409
  Serious: Yes (Hospitalization)
  Sender: ASTELLAS
  Company Number: US-ASTELLAS-2023US005442

PATIENT
  Age: 82 Year
  Sex: Male

DRUGS (3)
  1. ENZALUTAMIDE [Suspect]
     Active Substance: ENZALUTAMIDE
     Indication: Prostate cancer
     Route: 048
     Dates: start: 2023
  2. ENZALUTAMIDE [Suspect]
     Active Substance: ENZALUTAMIDE
     Dosage: (DECREASED DOSE)
     Route: 048
     Dates: start: 20240124
  3. ENZALUTAMIDE [Suspect]
     Active Substance: ENZALUTAMIDE
     Route: 048
     Dates: start: 20220615, end: 2023

REACTIONS (2)
  - Ventricular tachycardia [Recovered/Resolved]
  - Fatigue [Unknown]

NARRATIVE: CASE EVENT DATE: 20230203
